FAERS Safety Report 21795166 (Version 1)
Quarter: 2022Q4

REPORT INFORMATION
  Report Type: Report from Study
  Country: NL (occurrence: NL)
  Receive Date: 20221229
  Receipt Date: 20221229
  Transmission Date: 20230112
  Serious: Yes (Hospitalization, Other)
  Sender: FDA-Public Use
  Company Number: NL-KOREA IPSEN Pharma-2022-34939

PATIENT
  Sex: Female

DRUGS (1)
  1. LANREOTIDE ACETATE [Suspect]
     Active Substance: LANREOTIDE ACETATE
     Indication: Product used for unknown indication
     Dosage: 1.00 X PER 4 WEEKS
     Route: 058
     Dates: start: 20210129

REACTIONS (3)
  - Pancreatic carcinoma [Unknown]
  - Hypokalaemia [Unknown]
  - Vomiting [Unknown]
